FAERS Safety Report 9240771 (Version 1)
Quarter: 2013Q2

REPORT INFORMATION
  Report Type: Spontaneous
  Country: US (occurrence: None)
  Receive Date: 20130418
  Receipt Date: 20130418
  Transmission Date: 20140414
  Serious: Yes (Hospitalization)
  Sender: FDA-Public Use
  Company Number: None

PATIENT
  Age: 65 Year
  Sex: Male
  Weight: 79.4 kg

DRUGS (2)
  1. VANCOMYCIN [Suspect]
     Indication: ARTHRITIS INFECTIVE
     Route: 042
     Dates: start: 20130121, end: 20130125
  2. CEFAZOLIN [Suspect]
     Indication: ANTIBIOTIC PROPHYLAXIS
     Route: 042
     Dates: start: 20121228, end: 20121229

REACTIONS (3)
  - Renal failure acute [None]
  - Drug reaction with eosinophilia and systemic symptoms [None]
  - Ototoxicity [None]
